FAERS Safety Report 6051536-1 (Version None)
Quarter: 2009Q1

REPORT INFORMATION
  Report Type: 
  Country: None (occurrence: None)
  Receive Date: 20090121
  Receipt Date: 20090121
  Transmission Date: 20090719
  Serious: Yes (Other)
  Sender: FDA-Public Use
  Company Number: None

PATIENT
  Sex: Male
  Weight: 102.0593 kg

DRUGS (3)
  1. MORPHINE SUL TAB [Suspect]
     Indication: BACK PAIN
     Dosage: 1 TAB 4 X DAILY PO
     Route: 048
     Dates: start: 20070113, end: 20080107
  2. MORPHINE SUL TAB [Suspect]
     Indication: NECK PAIN
     Dosage: 1 TAB 4 X DAILY PO
     Route: 048
     Dates: start: 20070113, end: 20080107
  3. MORPHINE SUL TAB [Suspect]
     Indication: NERVE INJURY
     Dosage: 1 TAB 4 X DAILY PO
     Route: 048
     Dates: start: 20070113, end: 20080107

REACTIONS (5)
  - ASTHENIA [None]
  - DIZZINESS [None]
  - DRUG WITHDRAWAL SYNDROME [None]
  - NAUSEA [None]
  - PAIN [None]
